FAERS Safety Report 6511910-3 (Version None)
Quarter: 2009Q4

REPORT INFORMATION
  Report Type: 
  Country: None (occurrence: None)
  Receive Date: 20091222
  Receipt Date: 20090624
  Transmission Date: 20100525
  Serious: No
  Sender: FDA-Public Use
  Company Number: US-ASTRAZENECA-2009UW17729

PATIENT
  Age: 86 Year
  Sex: Female

DRUGS (3)
  1. CRESTOR [Suspect]
     Indication: BLOOD CHOLESTEROL INCREASED
     Route: 048
     Dates: start: 20090401
  2. TOPROL-XL [Concomitant]
  3. BABY ASPIRIN [Concomitant]

REACTIONS (2)
  - JOINT SWELLING [None]
  - MYALGIA [None]
